FAERS Safety Report 6322019-6 (Version None)
Quarter: 2009Q3

REPORT INFORMATION
  Report Type: 
  Country: None (occurrence: None)
  Receive Date: 20090813
  Receipt Date: 20090316
  Transmission Date: 20100115
  Serious: Yes (Hospitalization)
  Sender: FDA-Public Use
  Company Number: 090316-0000526

PATIENT
  Age: 36 Year
  Sex: Male

DRUGS (5)
  1. TRANXENE [Suspect]
     Indication: DRUG USE FOR UNKNOWN INDICATION
     Dosage: 3.75 MG; BID
     Dates: end: 20080402
  2. REBIF [Concomitant]
  3. PROZAC [Concomitant]
  4. DILANTIN [Concomitant]
  5. KEPPRA [Concomitant]

REACTIONS (1)
  - CONVULSION [None]
